FAERS Safety Report 16074278 (Version 1)
Quarter: 2019Q1

REPORT INFORMATION
  Report Type: Spontaneous
  Country: GB (occurrence: GB)
  Receive Date: 20190314
  Receipt Date: 20190314
  Transmission Date: 20190418
  Serious: Yes (Other)
  Sender: FDA-Public Use
  Company Number: GB-MYLANLABS-2019M1023351

PATIENT
  Sex: Male

DRUGS (1)
  1. TAMOXIFEN [Suspect]
     Active Substance: TAMOXIFEN
     Indication: PRODUCT USED FOR UNKNOWN INDICATION
     Dosage: UNK
     Route: 065

REACTIONS (9)
  - Feeling abnormal [Unknown]
  - Irritability [Unknown]
  - Onychoclasis [Unknown]
  - Mental impairment [Unknown]
  - Mouth ulceration [Recovered/Resolved]
  - Vision blurred [Unknown]
  - Mania [Unknown]
  - Loss of libido [Unknown]
  - Stress [Unknown]
